FAERS Safety Report 8301399-6 (Version None)
Quarter: 2012Q2

REPORT INFORMATION
  Report Type: 
  Country: None (occurrence: None)
  Receive Date: 20120417
  Receipt Date: 20120406
  Transmission Date: 20120825
  Serious: Yes (Death)
  Sender: FDA-Public Use
  Company Number: 1245671

PATIENT
  Age: 72 Year
  Sex: Male

DRUGS (6)
  1. AVASTIN [Suspect]
     Indication: RECTAL CANCER
     Dosage: 270 MG, 1 SINGLE ADMINISTRATION  INTRAVENOUS (NOT OTHERWISE SPECIFIED)
     Route: 042
     Dates: start: 20120228, end: 20120228
  2. ONDANSETRON [Concomitant]
  3. METHYLPREDNISOLONE [Concomitant]
  4. ATROPINE [Concomitant]
  5. FLUOROURACIL [Suspect]
     Indication: RECTAL CANCER
     Dosage: 4610 MG, 1 SINGLE ADMINISTRATION INTRAVENOUS (NOT OTHERWISE SPECIFIED)
     Route: 042
     Dates: start: 20120228, end: 20120301
  6. IRINOTECAN HCL [Suspect]
     Indication: RECTAL CANCER
     Dosage: 297 MG, 1 SINGLE ADMINISTRATION   INTRAVENOUS (NOT OTHERWISE SPECIFIED)
     Route: 042
     Dates: start: 20120228, end: 20120228

REACTIONS (11)
  - PELVIC ABSCESS [None]
  - SYNCOPE [None]
  - SHOCK HAEMORRHAGIC [None]
  - NAUSEA [None]
  - ABDOMINAL PAIN [None]
  - LEFT VENTRICULAR DYSFUNCTION [None]
  - HEAD INJURY [None]
  - VENTRICULAR HYPOKINESIA [None]
  - ANAEMIA [None]
  - VENTRICULAR FIBRILLATION [None]
  - CARDIO-RESPIRATORY ARREST [None]
